FAERS Safety Report 7265013-3 (Version None)
Quarter: 2011Q1

REPORT INFORMATION
  Report Type: 
  Country: None (occurrence: None)
  Receive Date: 20110131
  Receipt Date: 20101116
  Transmission Date: 20110831
  Serious: Yes (Hospitalization, Other)
  Sender: FDA-Public Use
  Company Number: US-BAYER-201038302NA

PATIENT
  Sex: Female
  Weight: 104.31 kg

DRUGS (11)
  1. OCELLA [Suspect]
     Indication: ACNE
     Route: 048
  2. COUMADIN [Concomitant]
  3. ACETAMINOPHEN AND HYDROCODONE BITARTRATE [Concomitant]
  4. IBUPROFEN [Concomitant]
     Indication: PAIN
     Dosage: UNK UNK, TID
     Dates: start: 20071101
  5. YAZ [Suspect]
     Indication: ACNE
     Route: 048
  6. VICODIN [Concomitant]
  7. YASMIN [Suspect]
     Indication: PRODUCT USED FOR UNKNOWN INDICATION
     Dosage: UNK
     Route: 048
     Dates: start: 20050329, end: 20070307
  8. ADVIL LIQUI-GELS [Concomitant]
     Indication: PAIN
     Dosage: UNK
     Dates: start: 20071031
  9. METFORMIN [Concomitant]
     Indication: DIABETES MELLITUS
  10. GLIPIZIDE [Concomitant]
     Indication: DIABETES MELLITUS
  11. DOCUSATE SODIUM [Concomitant]

REACTIONS (4)
  - PULMONARY EMBOLISM [None]
  - FEAR [None]
  - PAIN [None]
  - DEEP VEIN THROMBOSIS [None]
